FAERS Safety Report 24659096 (Version 1)
Quarter: 2024Q4

REPORT INFORMATION
  Report Type: Other
  Country: FR (occurrence: FR)
  Receive Date: 20241125
  Receipt Date: 20241125
  Transmission Date: 20250115
  Serious: Yes (Hospitalization)
  Sender: Atnahs Healthcare
  Company Number: None

PATIENT
  Age: 34 Year
  Sex: Female
  Weight: 54 kg

DRUGS (2)
  1. DIAZEPAM [Suspect]
     Active Substance: DIAZEPAM
     Indication: Product used for unknown indication
     Route: 048
     Dates: start: 20240912, end: 20240912
  2. AMYL NITRITE [Suspect]
     Active Substance: AMYL NITRITE
     Indication: Product used for unknown indication
     Route: 048
     Dates: start: 20240912, end: 20240912

REACTIONS (5)
  - Cyanosis [Recovered/Resolved]
  - Methaemoglobinaemia [Recovered/Resolved]
  - Respiratory failure [Recovered/Resolved]
  - Drug use disorder [Not Recovered/Not Resolved]
  - Substance abuser [Not Recovered/Not Resolved]

NARRATIVE: CASE EVENT DATE: 20240912
